FAERS Safety Report 14745819 (Version 2)
Quarter: 2018Q2

REPORT INFORMATION
  Report Type: Report from Study
  Country: BR (occurrence: BR)
  Receive Date: 20180411
  Receipt Date: 20180515
  Transmission Date: 20180711
  Serious: Yes (Other)
  Sender: FDA-Public Use
  Company Number: PHHY2018BR061870

PATIENT
  Sex: Female
  Weight: 70 kg

DRUGS (6)
  1. OMEPRAZOLE. [Concomitant]
     Active Substance: OMEPRAZOLE
     Indication: GASTRITIS PROPHYLAXIS
     Dosage: (4 YEARS AGO)
     Route: 065
  2. HIDANTAL [Concomitant]
     Active Substance: PHENYTOIN SODIUM
     Indication: PRODUCT USED FOR UNKNOWN INDICATION
     Dosage: 100 MG, (4 YEARS AGO)
     Route: 065
  3. EXELON PATCH [Suspect]
     Active Substance: RIVASTIGMINE
     Indication: DEMENTIA ALZHEIMER^S TYPE
     Dosage: 13.3 MG (PATCH 15 CM2), QD (MORE THAN 10 YEARS AGO)
     Route: 062
  4. MEMANTINE. [Concomitant]
     Active Substance: MEMANTINE
     Indication: PRODUCT USED FOR UNKNOWN INDICATION
     Dosage: 10 MG (4 YEARS AGO)
     Route: 065
  5. PONDERA [Concomitant]
     Active Substance: PAROXETINE HYDROCHLORIDE
     Indication: DEPRESSION
     Dosage: 20 MG, (10 YEARS AGO)
     Route: 065
  6. QUETIAPINE. [Concomitant]
     Active Substance: QUETIAPINE
     Indication: PRODUCT USED FOR UNKNOWN INDICATION
     Dosage: 25 MG, (FROM 4 YEARS AGO)
     Route: 065

REACTIONS (7)
  - Hemiparesis [Not Recovered/Not Resolved]
  - Agitation [Not Recovered/Not Resolved]
  - Thrombosis [Not Recovered/Not Resolved]
  - Product packaging quantity issue [Unknown]
  - Gait inability [Not Recovered/Not Resolved]
  - Cerebrovascular accident [Not Recovered/Not Resolved]
  - Weight increased [Unknown]
